FAERS Safety Report 7305193-4 (Version None)
Quarter: 2011Q1

REPORT INFORMATION
  Report Type: 
  Country: None (occurrence: None)
  Receive Date: 20110222
  Receipt Date: 20110215
  Transmission Date: 20110831
  Serious: Yes (Death, Hospitalization, Other)
  Sender: FDA-Public Use
  Company Number: US-PFIZER INC-2010111245

PATIENT
  Sex: Female
  Weight: 48.987 kg

DRUGS (18)
  1. ATIVAN [Concomitant]
     Dosage: UNK
  2. POTASSIUM CHLORIDE [Concomitant]
     Dosage: UNK
  3. ZOLOFT [Concomitant]
     Dosage: UNK
  4. LACTULOSE [Concomitant]
     Dosage: UNK
  5. SUTENT [Suspect]
     Indication: RENAL CANCER
     Dosage: 50 MG, 1X/DAY
     Route: 048
     Dates: start: 20100504
  6. MS CONTIN [Concomitant]
     Dosage: UNK
  7. CARAFATE [Concomitant]
     Dosage: UNK
  8. NEXIUM [Concomitant]
     Dosage: UNK
  9. SYNTHROID [Concomitant]
     Dosage: UNK
  10. LASIX [Concomitant]
     Dosage: UNK
  11. LISINOPRIL [Concomitant]
     Dosage: UNK
  12. BENADRYL [Concomitant]
     Dosage: UNK
  13. IRON [Concomitant]
     Dosage: UNK
  14. LISINOPRIL AND HYDROCHLOROTHIAZIDE [Concomitant]
     Dosage: UNK
  15. PREDNISONE [Concomitant]
     Dosage: UNK
  16. GABAPENTIN [Concomitant]
     Dosage: UNK
  17. FLEXERIL [Concomitant]
     Dosage: UNK
  18. OXYCODONE [Concomitant]
     Dosage: UNK

REACTIONS (9)
  - DISEASE PROGRESSION [None]
  - LUNG INFILTRATION [None]
  - ALVEOLITIS ALLERGIC [None]
  - MENTAL STATUS CHANGES [None]
  - RENAL CANCER METASTATIC [None]
  - ASTHENIA [None]
  - GAIT DISTURBANCE [None]
  - HYPOXIA [None]
  - INTERSTITIAL LUNG DISEASE [None]
